FAERS Safety Report 7063514-4 (Version None)
Quarter: 2010Q4

REPORT INFORMATION
  Report Type: 
  Country: None (occurrence: None)
  Receive Date: 20101026
  Receipt Date: 20100429
  Transmission Date: 20110411
  Serious: No
  Sender: FDA-Public Use
  Company Number: US-ABBOTT-10P-163-0636941-00

PATIENT
  Sex: Female
  Weight: 61.29 kg

DRUGS (5)
  1. LUPRON DEPOT [Suspect]
     Indication: ENDOMETRIOSIS
     Dates: start: 20100226
  2. NORETHINDRONE [Concomitant]
     Indication: BONE DENSITY DECREASED
  3. NORETHINDRONE [Concomitant]
     Indication: HOT FLUSH
  4. NORETHINDRONE [Concomitant]
     Indication: PROPHYLAXIS
  5. DILAUDID [Concomitant]
     Indication: PAIN

REACTIONS (4)
  - ADNEXA UTERI PAIN [None]
  - BONE PAIN [None]
  - JOINT SWELLING [None]
  - MOOD ALTERED [None]
